FAERS Safety Report 5328267-6 (Version None)
Quarter: 2007Q2

REPORT INFORMATION
  Report Type: 
  Country: None (occurrence: None)
  Receive Date: 20070518
  Receipt Date: 20070516
  Transmission Date: 20071010
  Serious: Yes (Death)
  Sender: FDA-Public Use
  Company Number: CA-JNJFOC-20070300451

PATIENT
  Age: 68 Year
  Sex: Male

DRUGS (5)
  1. REOPRO [Suspect]
     Indication: ACUTE MYOCARDIAL INFARCTION
     Route: 042
  2. REOPRO [Suspect]
     Indication: PERCUTANEOUS CORONARY INTERVENTION
     Route: 042
  3. PLAVIX [Concomitant]
     Indication: PERCUTANEOUS CORONARY INTERVENTION
     Route: 048
  4. ASPIRIN [Concomitant]
     Indication: PERCUTANEOUS CORONARY INTERVENTION
     Route: 048
  5. HEPARIN [Concomitant]
     Indication: PERCUTANEOUS CORONARY INTERVENTION
     Route: 042

REACTIONS (2)
  - PULMONARY HAEMORRHAGE [None]
  - RESPIRATORY FAILURE [None]
